FAERS Safety Report 16974825 (Version 6)
Quarter: 2023Q1

REPORT INFORMATION
  Report Type: Spontaneous
  Country: US (occurrence: US)
  Receive Date: 20191030
  Receipt Date: 20230320
  Transmission Date: 20230418
  Serious: No
  Sender: FDA-Public Use
  Company Number: US-PFIZER INC-2019467978

PATIENT
  Age: 56 Year
  Sex: Female

DRUGS (1)
  1. ESTRING [Suspect]
     Active Substance: ESTRADIOL
     Dosage: UNK, (STRENGTH: 2MG/75 MCG/24 H)

REACTIONS (4)
  - Contraindicated product administered [Unknown]
  - Infection [Unknown]
  - Anxiety [Unknown]
  - Blood pressure increased [Unknown]
